FAERS Safety Report 19406620 (Version 1)
Quarter: 2021Q2

REPORT INFORMATION
  Report Type: Report from Study
  Country: JP (occurrence: JP)
  Receive Date: 20210611
  Receipt Date: 20210611
  Transmission Date: 20210717
  Serious: Yes (Death, Other)
  Sender: FDA-Public Use
  Company Number: JP-KYOWAKIRIN-2021BKK009502

PATIENT

DRUGS (2)
  1. POTELIGEO [Suspect]
     Active Substance: MOGAMULIZUMAB-KPKC
     Indication: ADULT T-CELL LYMPHOMA/LEUKAEMIA REFRACTORY
     Dosage: 1 MG/KG, ONCE WEEKLY FOR 8 WEEKS
     Route: 042
  2. POTELIGEO [Suspect]
     Active Substance: MOGAMULIZUMAB-KPKC
     Indication: ADULT T-CELL LYMPHOMA/LEUKAEMIA

REACTIONS (20)
  - Skin disorder [Unknown]
  - Infusion related reaction [Unknown]
  - Cytomegalovirus viraemia [Unknown]
  - Erythema [Unknown]
  - Rash [Unknown]
  - Adverse drug reaction [Fatal]
  - Graft versus host disease [Unknown]
  - Tumour lysis syndrome [Unknown]
  - Cytomegalovirus infection [Unknown]
  - Infection [Unknown]
  - Thrombocytopenia [Unknown]
  - Toxic epidermal necrolysis [Unknown]
  - Stevens-Johnson syndrome [Unknown]
  - Leukopenia [Unknown]
  - Febrile neutropenia [Unknown]
  - Neutropenia [Unknown]
  - Pneumonia [Unknown]
  - Pruritus [Unknown]
  - Pyrexia [Unknown]
  - Immune system disorder [Unknown]
